FAERS Safety Report 17225927 (Version 1)
Quarter: 2020Q1

REPORT INFORMATION
  Report Type: Spontaneous
  Country: PT (occurrence: PT)
  Receive Date: 20200102
  Receipt Date: 20200102
  Transmission Date: 20200409
  Serious: Yes (Hospitalization, Other)
  Sender: FDA-Public Use
  Company Number: PT-MYLANLABS-2019M1132390

PATIENT
  Age: 80 Year
  Sex: Female

DRUGS (1)
  1. LEVOFLOXACIN. [Suspect]
     Active Substance: LEVOFLOXACIN
     Indication: PRODUCT USED FOR UNKNOWN INDICATION
     Dosage: UNK
     Route: 065

REACTIONS (10)
  - Hypercapnia [Unknown]
  - Feeling abnormal [Unknown]
  - Sputum purulent [Unknown]
  - Pruritus [Unknown]
  - Productive cough [Unknown]
  - Rash pruritic [Unknown]
  - Hypoxia [Unknown]
  - Pleuritic pain [Unknown]
  - Air embolism [Unknown]
  - Dyspnoea [Unknown]
